FAERS Safety Report 5586814-3 (Version None)
Quarter: 2008Q1

REPORT INFORMATION
  Report Type: 
  Country: None (occurrence: None)
  Receive Date: 20080110
  Receipt Date: 20080109
  Transmission Date: 20080703
  Serious: Yes (Hospitalization)
  Sender: FDA-Public Use
  Company Number: A0686408A

PATIENT
  Sex: Female

DRUGS (2)
  1. NICORETTE [Suspect]
     Indication: TOBACCO ABUSE
     Dosage: 4MG UNKNOWN
     Route: 002
  2. NIQUITIN [Suspect]
     Indication: SMOKING CESSATION THERAPY
     Route: 062

REACTIONS (13)
  - BLOOD CHOLESTEROL INCREASED [None]
  - CARDIAC DISORDER [None]
  - DRUG INEFFECTIVE [None]
  - GAIT DISTURBANCE [None]
  - HYPERSENSITIVITY [None]
  - INSOMNIA [None]
  - IRRITABILITY [None]
  - NERVOUSNESS [None]
  - OEDEMA PERIPHERAL [None]
  - PAIN IN EXTREMITY [None]
  - VENOUS OCCLUSION [None]
  - VIOLENCE-RELATED SYMPTOM [None]
  - WEIGHT DECREASED [None]
